FAERS Safety Report 25803995 (Version 1)
Quarter: 2025Q3

REPORT INFORMATION
  Report Type: Spontaneous
  Country: US (occurrence: US)
  Receive Date: 20250915
  Receipt Date: 20250915
  Transmission Date: 20251020
  Serious: Yes (Other)
  Sender: ALEXION PHARMACEUTICALS
  Company Number: US-ASTRAZENECA-202509USA010055US

PATIENT
  Age: 83 Year
  Sex: Female

DRUGS (3)
  1. FULVESTRANT [Suspect]
     Active Substance: FULVESTRANT
     Route: 065
  2. FULVESTRANT [Suspect]
     Active Substance: FULVESTRANT
  3. CAPECITABINE [Suspect]
     Active Substance: CAPECITABINE
     Route: 065

REACTIONS (10)
  - Metastases to lung [Unknown]
  - Metastases to bone [Unknown]
  - Malignant neoplasm progression [Unknown]
  - Drug intolerance [Unknown]
  - Diarrhoea [Unknown]
  - Cough [Unknown]
  - Back pain [Unknown]
  - Nausea [Unknown]
  - Pain [Unknown]
  - Abdominal distension [Unknown]
